FAERS Safety Report 5478014-2 (Version None)
Quarter: 2007Q4

REPORT INFORMATION
  Report Type: 
  Country: None (occurrence: None)
  Receive Date: 20071005
  Receipt Date: 20071001
  Transmission Date: 20080405
  Serious: Yes (Other)
  Sender: FDA-Public Use
  Company Number: FR-BAYER-200710564BFR

PATIENT
  Sex: Male

DRUGS (2)
  1. NEXAVAR [Suspect]
     Indication: RENAL CELL CARCINOMA STAGE UNSPECIFIED
     Dosage: TOTAL DAILY DOSE: 800 MG  UNIT DOSE: 200 MG
     Route: 048
     Dates: start: 20070901, end: 20070910
  2. RADIOTHERAPY [Concomitant]
     Indication: RENAL CELL CARCINOMA STAGE UNSPECIFIED
     Dates: start: 20070701, end: 20070701

REACTIONS (1)
  - EPILEPSY [None]
